FAERS Safety Report 5844347-0 (Version None)
Quarter: 2008Q3

REPORT INFORMATION
  Report Type: 
  Country: None (occurrence: None)
  Receive Date: 20080731
  Receipt Date: 20080620
  Transmission Date: 20090109
  Serious: No
  Sender: FDA-Public Use
  Company Number: US200712002985

PATIENT
  Age: 51 Year
  Sex: Male
  Weight: 88.4 kg

DRUGS (6)
  1. BYETTA [Suspect]
     Indication: TYPE 2 DIABETES MELLITUS
     Dosage: 5 UG, DAILY (1/D), 5 UG, 2/D, SUBCUTANEOUS, 5 UG, EACH MORNING, SUBCUTANEOUS, 10 UG, EACH EVENING, S
     Route: 058
     Dates: start: 20070401, end: 20070601
  2. BYETTA [Suspect]
     Indication: TYPE 2 DIABETES MELLITUS
     Dosage: 5 UG, DAILY (1/D), 5 UG, 2/D, SUBCUTANEOUS, 5 UG, EACH MORNING, SUBCUTANEOUS, 10 UG, EACH EVENING, S
     Route: 058
     Dates: start: 20070601, end: 20070901
  3. BYETTA [Suspect]
     Indication: TYPE 2 DIABETES MELLITUS
     Dosage: 5 UG, DAILY (1/D), 5 UG, 2/D, SUBCUTANEOUS, 5 UG, EACH MORNING, SUBCUTANEOUS, 10 UG, EACH EVENING, S
     Route: 058
     Dates: start: 20070901
  4. BYETTA [Suspect]
     Indication: TYPE 2 DIABETES MELLITUS
     Dosage: 5 UG, DAILY (1/D), 5 UG, 2/D, SUBCUTANEOUS, 5 UG, EACH MORNING, SUBCUTANEOUS, 10 UG, EACH EVENING, S
     Route: 058
     Dates: start: 20070901
  5. METFORMIN HCL [Concomitant]
  6. ACTOS [Concomitant]

REACTIONS (3)
  - BLOOD GLUCOSE INCREASED [None]
  - NAUSEA [None]
  - WEIGHT DECREASED [None]
